FAERS Safety Report 7118316-7 (Version None)
Quarter: 2010Q4

REPORT INFORMATION
  Report Type: 
  Country: None (occurrence: None)
  Receive Date: 20101123
  Receipt Date: 20101112
  Transmission Date: 20110411
  Serious: Yes (Hospitalization)
  Sender: FDA-Public Use
  Company Number: CH-JNJFOC-20101104076

PATIENT
  Age: 17 Year
  Sex: Male
  Weight: 46 kg

DRUGS (6)
  1. RISPERDAL [Suspect]
     Indication: ACUTE PSYCHOSIS
     Route: 048
  2. RISPERDAL [Suspect]
     Route: 048
  3. RISPERDAL [Suspect]
     Route: 048
  4. NOZINAN [Suspect]
     Indication: PSYCHOTIC DISORDER
     Dosage: 10 MG AS RESERVE MEDICATION AND 25 MG AS SECOND RESERVE MEDICATION IN THE EVENING
     Route: 048
  5. FLUCTINE [Suspect]
     Indication: ILL-DEFINED DISORDER
     Route: 048
  6. TEMESTA [Concomitant]
     Route: 048

REACTIONS (3)
  - CATATONIA [None]
  - DELIRIUM [None]
  - HALLUCINATION [None]
